FAERS Safety Report 5221373-6 (Version None)
Quarter: 2007Q1

REPORT INFORMATION
  Report Type: 
  Country: None (occurrence: None)
  Receive Date: 20070126
  Receipt Date: 20070115
  Transmission Date: 20070707
  Serious: Yes (Hospitalization)
  Sender: FDA-Public Use
  Company Number: FR-PFIZER INC-2007004534

PATIENT
  Sex: Female

DRUGS (4)
  1. LYRICA [Suspect]
     Indication: CERVICAL ROOT PAIN
     Dosage: TEXT:^25^
     Route: 048
     Dates: start: 20061108, end: 20061109
  2. VERAPAMIL [Interacting]
     Indication: MIGRAINE
     Route: 048
  3. ALL OTHER THERAPEUTIC PRODUCTS [Concomitant]
  4. ZOLPIDEM TARTRATE [Concomitant]

REACTIONS (3)
  - ATRIOVENTRICULAR BLOCK FIRST DEGREE [None]
  - BRADYCARDIA [None]
  - DRUG INTERACTION [None]
